FAERS Safety Report 9792227 (Version 1)
Quarter: 2013Q4

REPORT INFORMATION
  Report Type: Spontaneous
  Country: US (occurrence: None)
  Receive Date: 20131231
  Receipt Date: 20131231
  Transmission Date: 20140711
  Serious: Yes (Other)
  Sender: FDA-Public Use
  Company Number: None

PATIENT
  Age: 46 Year
  Sex: Male
  Weight: 117.94 kg

DRUGS (2)
  1. LEVOFLOXACIN [Suspect]
     Indication: SINUSITIS
     Dosage: 1 PILL
     Route: 048
     Dates: start: 20131227, end: 20131229
  2. TAMIFLU [Concomitant]

REACTIONS (7)
  - Cough [None]
  - Restlessness [None]
  - Anxiety [None]
  - Depression [None]
  - Fear [None]
  - Insomnia [None]
  - Blood pressure abnormal [None]
